FAERS Safety Report 15296276 (Version 1)
Quarter: 2018Q3

REPORT INFORMATION
  Report Type: Spontaneous
  Country: US (occurrence: US)
  Receive Date: 20180820
  Receipt Date: 20180820
  Transmission Date: 20181010
  Serious: Yes (Hospitalization)
  Sender: FDA-Public Use
  Company Number: US-GLAXOSMITHKLINE-US2018GSK147335

PATIENT
  Sex: Female

DRUGS (1)
  1. VENTOLIN [Suspect]
     Active Substance: ALBUTEROL SULFATE
     Indication: DYSPNOEA

REACTIONS (2)
  - Intentional product use issue [Unknown]
  - Anxiety [Unknown]
